FAERS Safety Report 17069871 (Version 2)
Quarter: 2019Q4

REPORT INFORMATION
  Report Type: Report from Study
  Country: US (occurrence: US)
  Receive Date: 20191125
  Receipt Date: 20191230
  Transmission Date: 20200122
  Serious: Yes (Hospitalization, Other)
  Sender: FDA-Public Use
  Company Number: US-ROCHE-2454844

PATIENT
  Age: 46 Year
  Sex: Male
  Weight: 68.1 kg

DRUGS (2)
  1. BACLOFEN. [Concomitant]
     Active Substance: BACLOFEN
     Indication: MUSCLE SPASMS
     Route: 048
  2. OCREVUS [Suspect]
     Active Substance: OCRELIZUMAB
     Indication: PRIMARY PROGRESSIVE MULTIPLE SCLEROSIS
     Route: 042
     Dates: start: 20190905

REACTIONS (6)
  - Dyspnoea [Recovered/Resolved]
  - Tongue disorder [Recovering/Resolving]
  - Pharyngeal swelling [Recovering/Resolving]
  - Throat tightness [Recovered/Resolved]
  - Back pain [Not Recovered/Not Resolved]
  - Urinary incontinence [Unknown]

NARRATIVE: CASE EVENT DATE: 20190905
